FAERS Safety Report 13983214 (Version 3)
Quarter: 2017Q4

REPORT INFORMATION
  Report Type: Spontaneous
  Country: BR (occurrence: BR)
  Receive Date: 20170918
  Receipt Date: 20171026
  Transmission Date: 20180321
  Serious: Yes (Other)
  Sender: FDA-Public Use
  Company Number: PHHY2017BR135007

PATIENT
  Age: 78 Year
  Sex: Female

DRUGS (1)
  1. LEVOFLOXACIN. [Suspect]
     Active Substance: LEVOFLOXACIN
     Indication: PNEUMONIA
     Dosage: 1 DF, QD
     Route: 048
     Dates: start: 20170906

REACTIONS (15)
  - Infection [Unknown]
  - Sinusitis [Unknown]
  - Fatigue [Unknown]
  - Malaise [Unknown]
  - Blood pressure decreased [Unknown]
  - Vomiting [Unknown]
  - Rash pustular [Unknown]
  - Dysphonia [Unknown]
  - Cough [Unknown]
  - Myalgia [Unknown]
  - Drug ineffective [Unknown]
  - Alcohol interaction [Unknown]
  - Nasal discharge discolouration [Unknown]
  - Sneezing [Unknown]
  - Humoral immune defect [Unknown]
